FAERS Safety Report 9585733 (Version 1)
Quarter: 2013Q4

REPORT INFORMATION
  Report Type: Spontaneous
  Country: US (occurrence: None)
  Receive Date: 20131002
  Receipt Date: 20131002
  Transmission Date: 20140711
  Serious: Yes (Life-Threatening)
  Sender: FDA-Public Use
  Company Number: None

PATIENT
  Age: 50 Year
  Sex: Male
  Weight: 80.74 kg

DRUGS (2)
  1. AMBIEN [Suspect]
     Indication: SLEEP DISORDER
     Dosage: ONCE BEFORE BED
     Dates: start: 20131018, end: 20131022
  2. AMBIEN [Suspect]
     Indication: ARTHRITIS
     Dosage: ONCE BEFORE BED
     Dates: start: 20131018, end: 20131022

REACTIONS (3)
  - Somnambulism [None]
  - Road traffic accident [None]
  - Legal problem [None]
